FAERS Safety Report 7853480-3 (Version None)
Quarter: 2011Q3

REPORT INFORMATION
  Report Type: 
  Country: None (occurrence: None)
  Receive Date: 20110915
  Receipt Date: 20110104
  Transmission Date: 20111222
  Serious: Yes (Other)
  Sender: FDA-Public Use
  Company Number: 2011027281

PATIENT
  Sex: Female
  Weight: 53 kg

DRUGS (15)
  1. ASPIRIN [Concomitant]
  2. CYCLOSPORINE OPHTH (CICLOSPORIN) [Concomitant]
  3. TRAZODONE HCL [Concomitant]
  4. PRIVIGEN [Suspect]
     Indication: HASHIMOTO'S ENCEPHALOPATHY
     Dosage: 30 G QD, AT VARIABLE RATE INCREASE INTRAVENOUS (NOT OTHERWISE SPECIFIED)
     Route: 042
     Dates: start: 20101221, end: 20101224
  5. FISH OIL (FISH OIL) [Concomitant]
  6. ACETAMINOPHEN [Concomitant]
  7. LEVOTHYROXINE SODIUM [Concomitant]
  8. BISACODYL (BISACODYL) [Concomitant]
  9. CALCIUM POLYCARBOPHIL (FIBERCON) (POLYCARBOPHIL CALCIUM) [Concomitant]
  10. IBUPROFEN [Concomitant]
  11. PHENYTOIN [Concomitant]
  12. PRIVIGEN [Suspect]
     Indication: HASHIMOTO'S ENCEPHALOPATHY
     Dosage: 30 G QD, VARIABLE RATE INCREASE INTRAVENOUS (NOT OTHERWISE SPECIFIED)
     Dates: start: 20101228, end: 20101229
  13. CLONAZEPAM [Concomitant]
  14. DOCUSATE (DOCUSATE) [Concomitant]
  15. MELATONIN (MELATONIN) [Concomitant]

REACTIONS (3)
  - HAEMOLYTIC ANAEMIA [None]
  - HAEMOGLOBINURIA [None]
  - HAEMOGLOBIN DECREASED [None]
